FAERS Safety Report 9397561 (Version 3)
Quarter: 2013Q3

REPORT INFORMATION
  Report Type: Spontaneous
  Country: BE (occurrence: BE)
  Receive Date: 20130712
  Receipt Date: 20130717
  Transmission Date: 20140515
  Serious: Yes (Hospitalization, Other)
  Sender: FDA-Public Use
  Company Number: BE-PFIZER INC-2013201928

PATIENT
  Age: 62 Year
  Sex: Female
  Weight: 64.8 kg

DRUGS (7)
  1. SUTENT [Suspect]
     Indication: RENAL CANCER STAGE IV
     Dosage: 50 MG DAILY, 4 WEEKS/6 WEEKS, CYCLE 1
     Route: 048
     Dates: start: 201301
  2. SUTENT [Suspect]
     Dosage: 37.5 MG DAILY, 4 WEEKS/6 WEEKS
     Route: 048
     Dates: end: 20130523
  3. L-THYROXIN [Concomitant]
     Dosage: 200 UG, 1X/DAY
     Route: 048
  4. OMEPRAZOLE [Concomitant]
     Dosage: 20 MG, 1X/DAY
     Route: 048
  5. XGEVA [Concomitant]
     Dosage: UNK
     Route: 058
  6. D-CURE [Concomitant]
     Dosage: 2 (UNKNOWN UNITS), MONTHLY
  7. CALCIUM [Concomitant]
     Dosage: 1 G, UNK

REACTIONS (2)
  - Myocardial infarction [Unknown]
  - Hypokinesia [Unknown]
